FAERS Safety Report 10133775 (Version 4)
Quarter: 2014Q2

REPORT INFORMATION
  Report Type: Report from Study
  Country: US (occurrence: US)
  Receive Date: 20140428
  Receipt Date: 20140630
  Transmission Date: 20141212
  Serious: Yes (Hospitalization, Other)
  Sender: FDA-Public Use
  Company Number: US-SA-2014SA032656

PATIENT
  Age: 52 Year
  Sex: Male

DRUGS (1)
  1. AUBAGIO [Suspect]
     Indication: MULTIPLE SCLEROSIS
     Route: 048
     Dates: start: 20140304, end: 20140507

REACTIONS (14)
  - Vomiting [Unknown]
  - Gait disturbance [Unknown]
  - Convulsion [Not Recovered/Not Resolved]
  - Diarrhoea [Recovered/Resolved]
  - Nausea [Recovered/Resolved]
  - Skin burning sensation [Recovered/Resolved]
  - Skin discolouration [Unknown]
  - Chest pain [Unknown]
  - Decreased appetite [Recovered/Resolved]
  - Tremor [Recovered/Resolved]
  - Headache [Recovered/Resolved]
  - Weight decreased [Recovering/Resolving]
  - Pain [Recovering/Resolving]
  - Influenza like illness [Not Recovered/Not Resolved]
